FAERS Safety Report 25941640 (Version 1)
Quarter: 2025Q4

REPORT INFORMATION
  Report Type: Spontaneous
  Country: SG (occurrence: SG)
  Receive Date: 20251020
  Receipt Date: 20251020
  Transmission Date: 20260118
  Serious: Yes (Death, Life-Threatening, Hospitalization, Other)
  Sender: PFIZER
  Company Number: SG-PFIZER INC-PV202500122843

PATIENT
  Age: 58 Year
  Sex: Female

DRUGS (4)
  1. SULFAMETHOXAZOLE\TRIMETHOPRIM [Suspect]
     Active Substance: SULFAMETHOXAZOLE\TRIMETHOPRIM
     Indication: Disseminated toxoplasmosis
     Dosage: UNK
     Route: 042
  2. LEUCOVORIN CALCIUM [Suspect]
     Active Substance: LEUCOVORIN CALCIUM
     Indication: Disseminated toxoplasmosis
     Dosage: UNK
  3. PYRIMETHAMINE [Suspect]
     Active Substance: PYRIMETHAMINE
     Indication: Disseminated toxoplasmosis
     Dosage: UNK
  4. SULFADIAZINE [Suspect]
     Active Substance: SULFADIAZINE
     Indication: Disseminated toxoplasmosis
     Dosage: UNK

REACTIONS (5)
  - Seizure [Fatal]
  - Nosocomial infection [Fatal]
  - Haemorrhage intracranial [Fatal]
  - Drug ineffective for unapproved indication [Fatal]
  - Off label use [Unknown]
